FAERS Safety Report 24395674 (Version 1)
Quarter: 2024Q4

REPORT INFORMATION
  Report Type: Spontaneous
  Country: CA (occurrence: CA)
  Receive Date: 20241004
  Receipt Date: 20241004
  Transmission Date: 20250114
  Serious: Yes (Death)
  Sender: ALEXION PHARMACEUTICALS
  Company Number: CA-AstraZeneca-CH-00710277A

PATIENT
  Age: 28 Year

DRUGS (44)
  1. QUETIAPINE FUMARATE [Suspect]
     Active Substance: QUETIAPINE FUMARATE
     Indication: Product used for unknown indication
     Dosage: UNK
  2. QUETIAPINE FUMARATE [Suspect]
     Active Substance: QUETIAPINE FUMARATE
     Dosage: UNK
  3. QUETIAPINE FUMARATE [Suspect]
     Active Substance: QUETIAPINE FUMARATE
     Dosage: UNK
  4. QUETIAPINE FUMARATE [Suspect]
     Active Substance: QUETIAPINE FUMARATE
     Dosage: UNK
  5. ACETAMINOPHEN [Suspect]
     Active Substance: ACETAMINOPHEN
     Route: 065
  6. ACETAMINOPHEN [Suspect]
     Active Substance: ACETAMINOPHEN
  7. ACETAMINOPHEN [Suspect]
     Active Substance: ACETAMINOPHEN
     Route: 065
  8. ACETAMINOPHEN [Suspect]
     Active Substance: ACETAMINOPHEN
  9. AMPHETAMINE [Suspect]
     Active Substance: AMPHETAMINE
     Route: 065
  10. AMPHETAMINE [Suspect]
     Active Substance: AMPHETAMINE
  11. AMPHETAMINE [Suspect]
     Active Substance: AMPHETAMINE
     Route: 065
  12. AMPHETAMINE [Suspect]
     Active Substance: AMPHETAMINE
  13. CAFFEINE [Suspect]
     Active Substance: CAFFEINE
     Route: 065
  14. CAFFEINE [Suspect]
     Active Substance: CAFFEINE
  15. CAFFEINE [Suspect]
     Active Substance: CAFFEINE
     Route: 065
  16. CAFFEINE [Suspect]
     Active Substance: CAFFEINE
  17. BENZOYL PEROXIDE\CETYLPYRIDINIUM CHLORIDE [Suspect]
     Active Substance: BENZOYL PEROXIDE\CETYLPYRIDINIUM CHLORIDE
     Route: 065
  18. BENZOYL PEROXIDE\CETYLPYRIDINIUM CHLORIDE [Suspect]
     Active Substance: BENZOYL PEROXIDE\CETYLPYRIDINIUM CHLORIDE
  19. BENZOYL PEROXIDE\CETYLPYRIDINIUM CHLORIDE [Suspect]
     Active Substance: BENZOYL PEROXIDE\CETYLPYRIDINIUM CHLORIDE
     Route: 065
  20. BENZOYL PEROXIDE\CETYLPYRIDINIUM CHLORIDE [Suspect]
     Active Substance: BENZOYL PEROXIDE\CETYLPYRIDINIUM CHLORIDE
  21. DIAZEPAM [Suspect]
     Active Substance: DIAZEPAM
     Route: 065
  22. DIAZEPAM [Suspect]
     Active Substance: DIAZEPAM
  23. DIAZEPAM [Suspect]
     Active Substance: DIAZEPAM
     Route: 065
  24. DIAZEPAM [Suspect]
     Active Substance: DIAZEPAM
  25. DIPHENHYDRAMINE [Suspect]
     Active Substance: DIPHENHYDRAMINE
     Route: 065
  26. DIPHENHYDRAMINE [Suspect]
     Active Substance: DIPHENHYDRAMINE
  27. DIPHENHYDRAMINE [Suspect]
     Active Substance: DIPHENHYDRAMINE
     Route: 065
  28. DIPHENHYDRAMINE [Suspect]
     Active Substance: DIPHENHYDRAMINE
  29. FENTANYL [Suspect]
     Active Substance: FENTANYL
     Route: 065
  30. FENTANYL [Suspect]
     Active Substance: FENTANYL
  31. FENTANYL [Suspect]
     Active Substance: FENTANYL
     Route: 065
  32. FENTANYL [Suspect]
     Active Substance: FENTANYL
  33. LAMOTRIGINE [Suspect]
     Active Substance: LAMOTRIGINE
     Route: 065
  34. LAMOTRIGINE [Suspect]
     Active Substance: LAMOTRIGINE
  35. LAMOTRIGINE [Suspect]
     Active Substance: LAMOTRIGINE
     Route: 065
  36. LAMOTRIGINE [Suspect]
     Active Substance: LAMOTRIGINE
  37. METHAMPHETAMINE [Suspect]
     Active Substance: METHAMPHETAMINE
     Route: 065
  38. METHAMPHETAMINE [Suspect]
     Active Substance: METHAMPHETAMINE
  39. METHAMPHETAMINE [Suspect]
     Active Substance: METHAMPHETAMINE
     Route: 065
  40. METHAMPHETAMINE [Suspect]
     Active Substance: METHAMPHETAMINE
  41. NALOXONE [Suspect]
     Active Substance: NALOXONE
     Route: 065
  42. NALOXONE [Suspect]
     Active Substance: NALOXONE
  43. NALOXONE [Suspect]
     Active Substance: NALOXONE
     Route: 065
  44. NALOXONE [Suspect]
     Active Substance: NALOXONE

REACTIONS (1)
  - Toxicity to various agents [Fatal]
